FAERS Safety Report 25436616 (Version 1)
Quarter: 2025Q2

REPORT INFORMATION
  Report Type: Spontaneous
  Country: US (occurrence: US)
  Receive Date: 20250614
  Receipt Date: 20250614
  Transmission Date: 20250717
  Serious: Yes (Life-Threatening, Hospitalization, Other)
  Sender: UNITED THERAPEUTICS
  Company Number: US-UNITED THERAPEUTICS-UNT-2024-037959

PATIENT
  Sex: Female

DRUGS (19)
  1. TYVASO DPI [Suspect]
     Active Substance: TREPROSTINIL
     Indication: Pulmonary arterial hypertension
     Dosage: 16 ?G, QID
     Dates: start: 20241126, end: 20241129
  2. TYVASO DPI [Suspect]
     Active Substance: TREPROSTINIL
     Indication: Pulmonary fibrosis
     Dosage: 32 ?G, QID
     Dates: start: 20241130, end: 20241206
  3. TYVASO DPI [Suspect]
     Active Substance: TREPROSTINIL
     Dosage: 48 ?G, QID
     Dates: start: 20241207, end: 202412
  4. TYVASO DPI [Suspect]
     Active Substance: TREPROSTINIL
     Dosage: 32 ?G, QID
     Dates: start: 202412, end: 20250225
  5. TYVASO DPI [Suspect]
     Active Substance: TREPROSTINIL
  6. TYVASO DPI [Suspect]
     Active Substance: TREPROSTINIL
     Dosage: 16 ?G, QID
  7. TYVASO DPI [Suspect]
     Active Substance: TREPROSTINIL
     Indication: Pulmonary arterial hypertension
  8. TYVASO DPI [Suspect]
     Active Substance: TREPROSTINIL
     Indication: Pulmonary fibrosis
  9. TYVASO DPI [Suspect]
     Active Substance: TREPROSTINIL
     Indication: Pulmonary arterial hypertension
  10. TYVASO DPI [Suspect]
     Active Substance: TREPROSTINIL
     Indication: Pulmonary fibrosis
  11. TYVASO DPI [Suspect]
     Active Substance: TREPROSTINIL
     Indication: Pulmonary arterial hypertension
  12. TYVASO DPI [Suspect]
     Active Substance: TREPROSTINIL
     Indication: Pulmonary fibrosis
  13. MULTAQ [Suspect]
     Active Substance: DRONEDARONE
     Indication: Atrial fibrillation
  14. CEPHALEXIN [Concomitant]
     Active Substance: CEPHALEXIN
     Indication: Escherichia infection
  15. CEPHALEXIN [Concomitant]
     Active Substance: CEPHALEXIN
     Indication: Haematological infection
  16. CEPHALEXIN [Concomitant]
     Active Substance: CEPHALEXIN
     Indication: Urinary tract infection bacterial
  17. PROBIOTICS NOS [Concomitant]
     Active Substance: PROBIOTICS NOS
     Indication: Escherichia infection
  18. PROBIOTICS NOS [Concomitant]
     Active Substance: PROBIOTICS NOS
     Indication: Haematological infection
  19. PROBIOTICS NOS [Concomitant]
     Active Substance: PROBIOTICS NOS
     Indication: Urinary tract infection bacterial

REACTIONS (32)
  - Atrial fibrillation [Not Recovered/Not Resolved]
  - Haematological infection [Recovering/Resolving]
  - Escherichia infection [Recovering/Resolving]
  - Urinary tract infection bacterial [Recovering/Resolving]
  - Hypotension [Recovered/Resolved]
  - Renal impairment [Unknown]
  - Delirium [Unknown]
  - Somnolence [Not Recovered/Not Resolved]
  - Cough [Recovering/Resolving]
  - Arthralgia [Unknown]
  - Back pain [Unknown]
  - Blood pressure systolic decreased [Recovered/Resolved]
  - Fatigue [Recovering/Resolving]
  - Lethargy [Not Recovered/Not Resolved]
  - Blood pressure abnormal [Recovered/Resolved]
  - Cyanosis [Unknown]
  - Vascular occlusion [Unknown]
  - Hypophagia [Unknown]
  - Dehydration [Unknown]
  - Asthenia [Unknown]
  - Taste disorder [Unknown]
  - Weight decreased [Unknown]
  - Headache [Unknown]
  - Gait inability [Unknown]
  - Peripheral swelling [Recovering/Resolving]
  - Rales [Recovering/Resolving]
  - Drug hypersensitivity [Unknown]
  - Infusion site reaction [Recovering/Resolving]
  - Drug tolerance decreased [Unknown]
  - Intentional medical device removal by patient [Recovered/Resolved]
  - Product dose omission issue [Recovered/Resolved]
  - Therapy partial responder [Unknown]

NARRATIVE: CASE EVENT DATE: 20240101
